FAERS Safety Report 8251201-6 (Version None)
Quarter: 2012Q2

REPORT INFORMATION
  Report Type: 
  Country: None (occurrence: None)
  Receive Date: 20120402
  Receipt Date: 20120329
  Transmission Date: 20120825
  Serious: Yes (Disabling, Other)
  Sender: FDA-Public Use
  Company Number: US-MERCK-1006USA03996

PATIENT
  Age: 73 Year
  Sex: Female
  Weight: 91 kg

DRUGS (2)
  1. FOSAMAX [Suspect]
     Indication: OSTEOPENIA
     Route: 048
     Dates: start: 20030101, end: 20071101
  2. FOSAMAX [Suspect]
     Indication: OSTEOPOROSIS
     Route: 048
     Dates: start: 20030101, end: 20071101

REACTIONS (25)
  - ARTHRALGIA [None]
  - HERPES ZOSTER [None]
  - IRRITABLE BOWEL SYNDROME [None]
  - OSTEOPOROSIS [None]
  - ASTHMA [None]
  - BACK DISORDER [None]
  - PANCREATITIS [None]
  - ADVERSE DRUG REACTION [None]
  - GASTROOESOPHAGEAL REFLUX DISEASE [None]
  - RADICULOPATHY [None]
  - OSTEONECROSIS OF JAW [None]
  - HYPERSENSITIVITY [None]
  - BENIGN NEOPLASM [None]
  - BONE LOSS [None]
  - HIATUS HERNIA [None]
  - HYPERTENSION [None]
  - VOMITING [None]
  - MYOCARDIAL INFARCTION [None]
  - DIABETES MELLITUS INADEQUATE CONTROL [None]
  - INSULIN-REQUIRING TYPE 2 DIABETES MELLITUS [None]
  - ADRENAL DISORDER [None]
  - NAUSEA [None]
  - HEADACHE [None]
  - HYPERCHOLESTEROLAEMIA [None]
  - OSTEOARTHRITIS [None]
